FAERS Safety Report 11238724 (Version 1)
Quarter: 2015Q3

REPORT INFORMATION
  Report Type: Spontaneous
  Country: BR (occurrence: BR)
  Receive Date: 20150706
  Receipt Date: 20150706
  Transmission Date: 20151125
  Serious: Yes (Other)
  Sender: FDA-Public Use
  Company Number: PHHY2015BR080282

PATIENT
  Age: 52 Year
  Sex: Female

DRUGS (6)
  1. DIOVAN [Suspect]
     Active Substance: VALSARTAN
     Dosage: 1 DF (TABLET OF 160 MG), QD
     Route: 048
     Dates: start: 20150627
  2. DIOVAN [Suspect]
     Active Substance: VALSARTAN
     Indication: HYPERTENSION
     Dosage: 1 DF (TABLET OF 80 MG), QD
     Route: 048
     Dates: end: 2011
  3. CAPTOPRIL. [Concomitant]
     Active Substance: CAPTOPRIL
     Indication: PRODUCT USED FOR UNKNOWN INDICATION
     Dosage: 0.5 DF, QD
     Route: 065
  4. DIOVAN [Suspect]
     Active Substance: VALSARTAN
     Dosage: 1 DF (TABLET OF 160 MG), QD
     Route: 048
     Dates: start: 2011, end: 2012
  5. HYDROCHLOROTHIAZIDE. [Concomitant]
     Active Substance: HYDROCHLOROTHIAZIDE
     Indication: PRODUCT USED FOR UNKNOWN INDICATION
     Route: 065
  6. CAPTOPRIL. [Concomitant]
     Active Substance: CAPTOPRIL
     Dosage: 1.5 DF, QD
     Route: 065

REACTIONS (22)
  - Haemoptysis [Recovered/Resolved]
  - Anxiety [Recovering/Resolving]
  - Epistaxis [Recovered/Resolved]
  - Nasal polyps [Unknown]
  - Erythema [Not Recovered/Not Resolved]
  - Laryngitis [Unknown]
  - Hypertension [Unknown]
  - Diabetes mellitus [Unknown]
  - Stress [Not Recovered/Not Resolved]
  - Blood pressure increased [Unknown]
  - Headache [Not Recovered/Not Resolved]
  - Gastrooesophageal reflux disease [Not Recovered/Not Resolved]
  - Sinusitis [Not Recovered/Not Resolved]
  - Nasal septum disorder [Unknown]
  - Back pain [Not Recovered/Not Resolved]
  - Weight increased [Unknown]
  - Epistaxis [Recovered/Resolved]
  - Ear pain [Not Recovered/Not Resolved]
  - Ocular hyperaemia [Not Recovered/Not Resolved]
  - Respiratory disorder [Recovered/Resolved]
  - Nasal septum deviation [Unknown]
  - Pharyngeal oedema [Unknown]

NARRATIVE: CASE EVENT DATE: 2006
